FAERS Safety Report 8543114-7 (Version None)
Quarter: 2012Q3

REPORT INFORMATION
  Report Type: 
  Country: None (occurrence: None)
  Receive Date: 20120727
  Receipt Date: 20111209
  Transmission Date: 20120928
  Serious: No
  Sender: FDA-Public Use
  Company Number: US-MYLANLABS-2011S1025554

PATIENT
  Sex: Male

DRUGS (4)
  1. LEVOTHYROXINE SODIUM [Suspect]
     Indication: HYPOTHYROIDISM
     Route: 048
     Dates: start: 20101201
  2. LISINOPRIL [Concomitant]
     Indication: BLOOD PRESSURE INCREASED
  3. INSULIN [Concomitant]
     Indication: DIABETES MELLITUS
  4. MONOPRIL [Concomitant]
     Indication: BLOOD PRESSURE INCREASED

REACTIONS (6)
  - BLOOD PRESSURE INCREASED [None]
  - FATIGUE [None]
  - THYROID FUNCTION TEST ABNORMAL [None]
  - DRUG INEFFECTIVE [None]
  - WEIGHT INCREASED [None]
  - FEELING COLD [None]
